FAERS Safety Report 21692979 (Version 1)
Quarter: 2022Q4

REPORT INFORMATION
  Report Type: Spontaneous
  Country: FR (occurrence: FR)
  Receive Date: 20221207
  Receipt Date: 20221207
  Transmission Date: 20230113
  Serious: Yes (Other)
  Sender: FDA-Public Use
  Company Number: None

PATIENT
  Age: 9 Year
  Sex: Female
  Weight: 33 kg

DRUGS (10)
  1. CARBOPLATIN [Suspect]
     Active Substance: CARBOPLATIN
     Indication: Optic glioma
     Dates: start: 20141022, end: 20150429
  2. ONCOVIN [Suspect]
     Active Substance: VINCRISTINE SULFATE
     Indication: Optic glioma
     Dosage: 1 MG
     Dates: start: 20141022, end: 20150429
  3. LOMUSTINE [Suspect]
     Active Substance: LOMUSTINE
     Indication: Optic glioma
     Dates: start: 20160810, end: 20170625
  4. VINBLASTINE SULFATE [Suspect]
     Active Substance: VINBLASTINE SULFATE
     Indication: Optic glioma
     Dates: start: 20150617, end: 20161223
  5. PROCARBAZINE [Suspect]
     Active Substance: PROCARBAZINE
     Indication: Optic glioma
     Dates: start: 20160810, end: 20170625
  6. KEPPRA [Suspect]
     Active Substance: LEVETIRACETAM
     Indication: Seizure prophylaxis
     Dates: start: 20220811
  7. LEVOTHYROXINE [Suspect]
     Active Substance: LEVOTHYROXINE
     Indication: Central hypothyroidism
  8. GONADORELIN [Suspect]
     Active Substance: GONADORELIN
     Indication: Precocious puberty
     Dates: start: 201907
  9. HYDROCORTISONE ACETATE [Suspect]
     Active Substance: HYDROCORTISONE ACETATE
     Indication: Central hypothyroidism
     Dates: start: 20220324
  10. THIOGUANINE [Suspect]
     Active Substance: THIOGUANINE
     Indication: Optic glioma
     Dates: start: 20160810, end: 20170625

REACTIONS (1)
  - Type 2 diabetes mellitus [Not Recovered/Not Resolved]

NARRATIVE: CASE EVENT DATE: 20220819
